FAERS Safety Report 7486744-6 (Version None)
Quarter: 2011Q2

REPORT INFORMATION
  Report Type: 
  Country: None (occurrence: None)
  Receive Date: 20110517
  Receipt Date: 20100914
  Transmission Date: 20111010
  Serious: No
  Sender: FDA-Public Use
  Company Number: US-NOVEN-ALL1-2010-04883

PATIENT
  Sex: Female
  Weight: 27.211 kg

DRUGS (2)
  1. BENADRYL [Concomitant]
     Dosage: UNK, 1X/DAY:QD (2 TSP.)
     Route: 048
     Dates: start: 20070101
  2. DAYTRANA [Suspect]
     Dosage: 10 MG, 1X/DAY:QD
     Route: 048
     Dates: start: 20100908, end: 20100909

REACTIONS (4)
  - CRYING [None]
  - NERVOUSNESS [None]
  - MANIA [None]
  - LOGORRHOEA [None]
